FAERS Safety Report 5951581-8 (Version None)
Quarter: 2008Q4

REPORT INFORMATION
  Report Type: 
  Country: None (occurrence: None)
  Receive Date: 20081113
  Receipt Date: 20081104
  Transmission Date: 20090506
  Serious: Yes (Other)
  Sender: FDA-Public Use
  Company Number: PHHY2008JP21090

PATIENT
  Sex: Female

DRUGS (3)
  1. ZOLEDRONIC ACID [Suspect]
     Indication: BREAST CANCER
     Dosage: 4 MG EVERY 4 WEEKS
     Route: 042
     Dates: start: 20070312, end: 20080312
  2. ZOLEDRONIC ACID [Suspect]
     Indication: METASTASES TO BONE
  3. TS 1 [Concomitant]
     Dosage: 120 MG
     Route: 048
     Dates: start: 20070312, end: 20080213

REACTIONS (5)
  - BONE LESION [None]
  - DENTAL OPERATION [None]
  - INFLAMMATION [None]
  - OSTEONECROSIS [None]
  - PURULENT DISCHARGE [None]
